FAERS Safety Report 5507525-6 (Version None)
Quarter: 2007Q4

REPORT INFORMATION
  Report Type: 
  Country: None (occurrence: None)
  Receive Date: 20071105
  Receipt Date: 20071105
  Transmission Date: 20080405
  Serious: Yes (Other)
  Sender: FDA-Public Use
  Company Number: None

PATIENT
  Sex: Female
  Weight: 78 kg

DRUGS (2)
  1. DEFINITY [Suspect]
     Indication: STRESS ECHOCARDIOGRAM
     Dates: start: 20070423, end: 20070423
  2. ALLEGRA [Concomitant]

REACTIONS (7)
  - DIZZINESS [None]
  - PRURITUS [None]
  - RASH [None]
  - SWOLLEN TONGUE [None]
  - TACHYCARDIA [None]
  - TONGUE DISORDER [None]
  - URTICARIA [None]
